FAERS Safety Report 24731413 (Version 1)
Quarter: 2024Q4

REPORT INFORMATION
  Report Type: Spontaneous
  Country: FR (occurrence: FR)
  Receive Date: 20241213
  Receipt Date: 20241213
  Transmission Date: 20250114
  Serious: Yes (Death)
  Sender: CHEPLAPHARM
  Company Number: None

PATIENT
  Age: 64 Year
  Sex: Male

DRUGS (16)
  1. OLANZAPINE [Suspect]
     Active Substance: OLANZAPINE
     Indication: Autism spectrum disorder
     Dosage: MORNING AND EVENING
     Dates: start: 202003
  2. OLANZAPINE [Suspect]
     Active Substance: OLANZAPINE
     Indication: Behaviour disorder
     Dosage: MORNING AND EVENING
     Dates: start: 202003
  3. ALPRAZOLAM [Suspect]
     Active Substance: ALPRAZOLAM
     Indication: Behaviour disorder
     Dosage: MORNING AND NOON?DAILY DOSE: 1 MILLIGRAM
     Route: 048
     Dates: start: 202003
  4. ALPRAZOLAM [Suspect]
     Active Substance: ALPRAZOLAM
     Indication: Autism spectrum disorder
     Dosage: MORNING AND NOON?DAILY DOSE: 1 MILLIGRAM
     Route: 048
     Dates: start: 202003
  5. CYAMEMAZINE [Suspect]
     Active Substance: CYAMEMAZINE
     Indication: Autism spectrum disorder
     Dosage: MORNING?DAILY DOSE: 25 MILLIGRAM
     Route: 048
     Dates: start: 202309
  6. CYAMEMAZINE [Suspect]
     Active Substance: CYAMEMAZINE
     Indication: Behaviour disorder
     Dosage: MORNING?DAILY DOSE: 25 MILLIGRAM
     Route: 048
     Dates: start: 202309
  7. VALPROIC ACID [Suspect]
     Active Substance: VALPROIC ACID
     Indication: Autism spectrum disorder
     Dosage: MORNING?DAILY DOSE: 500 MILLIGRAM
     Route: 048
     Dates: start: 202005
  8. VALPROIC ACID [Suspect]
     Active Substance: VALPROIC ACID
     Indication: Behaviour disorder
     Dosage: MORNING?DAILY DOSE: 500 MILLIGRAM
     Route: 048
     Dates: start: 202005
  9. VALPROIC ACID [Suspect]
     Active Substance: VALPROIC ACID
     Indication: Autism spectrum disorder
     Dosage: EVENING?DAILY DOSE: 1000 MILLIGRAM
     Route: 048
     Dates: start: 202005
  10. VALPROIC ACID [Suspect]
     Active Substance: VALPROIC ACID
     Indication: Behaviour disorder
     Dosage: EVENING?DAILY DOSE: 1000 MILLIGRAM
     Route: 048
     Dates: start: 202005
  11. HALOPERIDOL [Suspect]
     Active Substance: HALOPERIDOL
     Indication: Behaviour disorder
     Dosage: MORNING, AFTERNOON AND EVENING?DAILY DOSE: 15 MILLIGRAM
     Dates: start: 202003
  12. HALOPERIDOL [Suspect]
     Active Substance: HALOPERIDOL
     Indication: Autism spectrum disorder
     Dosage: MORNING, AFTERNOON AND EVENING?DAILY DOSE: 15 MILLIGRAM
     Dates: start: 202003
  13. ALFUZOSIN [Concomitant]
     Active Substance: ALFUZOSIN
     Dosage: EXTENDED-RELEASE TABLET
  14. HERBALS\SAW PALMETTO [Concomitant]
     Active Substance: HERBALS\SAW PALMETTO
  15. POLYETHYLENE GLYCOL 4000 [Concomitant]
     Active Substance: POLYETHYLENE GLYCOL 4000
     Dosage: POWDER FOR DRINKABLE SOLUTION IN? SACHET
     Dates: start: 202203
  16. CHOLECALCIFEROL [Concomitant]
     Active Substance: CHOLECALCIFEROL
     Dosage: ORAL SOLUTION IN ?AMPOULE

REACTIONS (1)
  - Choking [Fatal]

NARRATIVE: CASE EVENT DATE: 20241022
